FAERS Safety Report 9980463 (Version 1)
Quarter: 2014Q1

REPORT INFORMATION
  Report Type: Spontaneous
  Country: BR (occurrence: BR)
  Receive Date: 20140307
  Receipt Date: 20140307
  Transmission Date: 20141002
  Serious: Yes (Hospitalization, Other)
  Sender: FDA-Public Use
  Company Number: BR-AMGEN-BRASP2014016379

PATIENT
  Age: 58 Year
  Sex: Female

DRUGS (4)
  1. ENBREL [Suspect]
     Indication: RHEUMATOID ARTHRITIS
     Dosage: 50 MG, WEEKLY
     Route: 058
     Dates: start: 201303, end: 201311
  2. GLIFAGE [Concomitant]
     Dosage: 1000 MG (2 TABLETS), TWICE A DAY
     Route: 048
  3. GLICLAZIDE [Concomitant]
     Dosage: 20 MG (1 TABLET), 2X/DAY
     Route: 048
  4. INSULIN [Concomitant]
     Dosage: 20 IU, ONCE A DAY (AT NIGHT)
     Route: 058

REACTIONS (4)
  - Pulmonary oedema [Unknown]
  - Pyrexia [Unknown]
  - Dyspnoea [Unknown]
  - Lung infection [Unknown]
